FAERS Safety Report 8313476-4 (Version None)
Quarter: 2012Q2

REPORT INFORMATION
  Report Type: 
  Country: None (occurrence: None)
  Receive Date: 20120426
  Receipt Date: 20120420
  Transmission Date: 20120825
  Serious: Yes (Hospitalization, Other)
  Sender: FDA-Public Use
  Company Number: PH-JNJFOC-20080802706

PATIENT
  Sex: Female
  Weight: 53.6 kg

DRUGS (41)
  1. GOLIMUMAB [Suspect]
     Route: 058
     Dates: start: 20070528
  2. METHOTREXATE [Suspect]
     Route: 048
     Dates: start: 20080310, end: 20080310
  3. METHOTREXATE [Suspect]
     Route: 048
     Dates: start: 20080623
  4. GOLIMUMAB [Suspect]
     Route: 058
     Dates: start: 20080211
  5. GOLIMUMAB [Suspect]
     Route: 058
     Dates: start: 20070129
  6. METHOTREXATE [Suspect]
     Route: 048
     Dates: start: 20080218, end: 20080303
  7. FERROUS SULFATE TAB [Concomitant]
     Route: 048
     Dates: start: 20070413
  8. GOLIMUMAB [Suspect]
     Route: 058
     Dates: start: 20071112
  9. GOLIMUMAB [Suspect]
     Route: 058
     Dates: start: 20071016
  10. GOLIMUMAB [Suspect]
     Route: 058
     Dates: start: 20070110
  11. GOLIMUMAB [Suspect]
     Route: 058
     Dates: start: 20061216
  12. METHOTREXATE [Suspect]
     Route: 048
     Dates: start: 20061030, end: 20061120
  13. METHOTREXATE [Suspect]
     Route: 048
     Dates: start: 20080324, end: 20080324
  14. FUROSEMIDE [Suspect]
     Indication: PERICARDIAL EFFUSION
     Route: 048
     Dates: start: 20080801, end: 20080813
  15. CELEBREX [Concomitant]
     Route: 048
     Dates: start: 20070416
  16. GOLIMUMAB [Suspect]
     Indication: RHEUMATOID ARTHRITIS
     Route: 058
     Dates: start: 20080723
  17. GOLIMUMAB [Suspect]
     Route: 058
     Dates: start: 20070825
  18. GOLIMUMAB [Suspect]
     Route: 058
     Dates: start: 20070730
  19. GOLIMUMAB [Suspect]
     Route: 058
     Dates: start: 20070402
  20. GOLIMUMAB [Suspect]
     Route: 058
     Dates: start: 20070226
  21. GOLIMUMAB [Suspect]
     Route: 058
     Dates: start: 20080331
  22. METHOTREXATE [Suspect]
     Route: 048
     Dates: start: 20061127, end: 20061204
  23. METHOTREXATE [Suspect]
     Route: 048
     Dates: start: 20061016, end: 20061023
  24. CALCIUM LACTATE [Concomitant]
     Route: 048
     Dates: start: 20060801
  25. FOLIC ACID [Concomitant]
     Route: 048
     Dates: start: 20061018
  26. NEOBLOC [Concomitant]
     Route: 048
     Dates: start: 20070226
  27. GOLIMUMAB [Suspect]
     Route: 058
     Dates: start: 20080318
  28. GOLIMUMAB [Suspect]
     Route: 058
     Dates: start: 20080110
  29. METHOTREXATE [Suspect]
     Indication: RHEUMATOID ARTHRITIS
     Route: 048
     Dates: start: 20080114, end: 20080204
  30. METHOTREXATE [Suspect]
     Route: 048
     Dates: start: 20070430, end: 20071126
  31. METHOTREXATE [Suspect]
     Route: 048
     Dates: start: 20071217, end: 20080107
  32. BIOGESIC [Concomitant]
     Route: 048
     Dates: start: 19910101
  33. GOLIMUMAB [Suspect]
     Route: 058
     Dates: start: 20071212
  34. GOLIMUMAB [Suspect]
     Route: 058
     Dates: start: 20070917
  35. GOLIMUMAB [Suspect]
     Route: 058
     Dates: start: 20070702
  36. GOLIMUMAB [Suspect]
     Route: 058
     Dates: start: 20070430
  37. METHOTREXATE [Suspect]
     Route: 048
     Dates: start: 20061211, end: 20070423
  38. CAPTOPRIL [Suspect]
     Indication: PERICARDIAL EFFUSION
     Route: 048
     Dates: start: 20080801, end: 20080813
  39. GOLIMUMAB [Suspect]
     Route: 058
     Dates: start: 20061115
  40. GOLIMUMAB [Suspect]
     Route: 058
     Dates: start: 20061016
  41. METHOTREXATE [Suspect]
     Route: 048
     Dates: start: 20080317, end: 20080317

REACTIONS (3)
  - HYPOTENSION [None]
  - PERICARDIAL EFFUSION [None]
  - PULMONARY TUBERCULOSIS [None]
